FAERS Safety Report 25794007 (Version 2)
Quarter: 2025Q3

REPORT INFORMATION
  Report Type: Spontaneous
  Country: JP (occurrence: JP)
  Receive Date: 20250912
  Receipt Date: 20250929
  Transmission Date: 20251020
  Serious: Yes (Hospitalization, Other)
  Sender: EMD SERONO INC
  Company Number: JP-Merck Healthcare KGaA-2025045150

PATIENT
  Age: 8 Decade

DRUGS (1)
  1. BAVENCIO [Suspect]
     Active Substance: AVELUMAB
     Indication: Bladder cancer
     Dosage: A TOTAL OF 22 DOSES WERE ADMINISTERED
     Dates: start: 20241002, end: 20250723

REACTIONS (2)
  - Adrenocorticotropic hormone deficiency [Not Recovered/Not Resolved]
  - Metastases to lymph nodes [Recovering/Resolving]

NARRATIVE: CASE EVENT DATE: 20250701
